FAERS Safety Report 16156373 (Version 1)
Quarter: 2019Q2

REPORT INFORMATION
  Report Type: Spontaneous
  Country: US (occurrence: US)
  Receive Date: 20190404
  Receipt Date: 20190404
  Transmission Date: 20190711
  Serious: No
  Sender: FDA-Public Use
  Company Number: US-BAUSCH-BL-2019-007567

PATIENT
  Age: 88 Year
  Sex: Male

DRUGS (2)
  1. ERYTHROMYCIN OPHTHALMIC OINTMENT USP 0.5% [Suspect]
     Active Substance: ERYTHROMYCIN
     Indication: OFF LABEL USE
  2. ERYTHROMYCIN OPHTHALMIC OINTMENT USP 0.5% [Suspect]
     Active Substance: ERYTHROMYCIN
     Indication: POSTOPERATIVE CARE
     Dosage: BEFORE BEDTIME
     Route: 047
     Dates: start: 20190305, end: 20190306

REACTIONS (6)
  - Eye discharge [Not Recovered/Not Resolved]
  - Exophthalmos [Not Recovered/Not Resolved]
  - Off label use [Unknown]
  - Swelling face [Not Recovered/Not Resolved]
  - Ocular hyperaemia [Not Recovered/Not Resolved]
  - Eye swelling [Not Recovered/Not Resolved]

NARRATIVE: CASE EVENT DATE: 201903
